FAERS Safety Report 17680671 (Version 1)
Quarter: 2020Q2

REPORT INFORMATION
  Report Type: Spontaneous
  Country: FR (occurrence: FR)
  Receive Date: 20200417
  Receipt Date: 20200417
  Transmission Date: 20200714
  Serious: Yes (Hospitalization)
  Sender: FDA-Public Use
  Company Number: FR-TEVA-2020-FR-1224797

PATIENT
  Age: 67 Year
  Sex: Female
  Weight: 130 kg

DRUGS (9)
  1. ENDOXAN [Suspect]
     Active Substance: CYCLOPHOSPHAMIDE
     Indication: CHRONIC LYMPHOCYTIC LEUKAEMIA
     Dosage: 250MG/M2
     Route: 042
     Dates: start: 20190916, end: 20200115
  2. RITUXIMAB ((MAMMIFERE/HAMSTER/CELLULES CHO)) [Suspect]
     Active Substance: RITUXIMAB
     Indication: CHRONIC LYMPHOCYTIC LEUKAEMIA
     Route: 042
     Dates: start: 20190916, end: 20200115
  3. COAPROVEL [Concomitant]
     Active Substance: HYDROCHLOROTHIAZIDE\IRBESARTAN
  4. CRESTOR [Concomitant]
     Active Substance: ROSUVASTATIN CALCIUM
  5. METFORMINE [Concomitant]
     Active Substance: METFORMIN HYDROCHLORIDE
  6. GLICLAZIDE [Concomitant]
     Active Substance: GLICLAZIDE
  7. PELGRAZ [Concomitant]
     Active Substance: PEGFILGRASTIM
  8. LANTUS [Concomitant]
     Active Substance: INSULIN GLARGINE
  9. FURADANTINE [Suspect]
     Active Substance: NITROFURANTOIN
     Indication: CHRONIC LYMPHOCYTIC LEUKAEMIA
     Dosage: 25MG/M2
     Route: 042
     Dates: start: 20190916, end: 20200115

REACTIONS (1)
  - Febrile neutropenia [Recovered/Resolved]

NARRATIVE: CASE EVENT DATE: 20191123
